FAERS Safety Report 7633178-7 (Version None)
Quarter: 2011Q3

REPORT INFORMATION
  Report Type: 
  Country: None (occurrence: None)
  Receive Date: 20110725
  Receipt Date: 20110721
  Transmission Date: 20111222
  Serious: Yes (Death, Other)
  Sender: FDA-Public Use
  Company Number: CN-PFIZER INC-2011165169

PATIENT
  Age: 45 Year
  Sex: Male

DRUGS (1)
  1. CEFOPERAZONE SODIUM [Suspect]
     Indication: INFECTION PROPHYLAXIS
     Dosage: UNK
     Route: 042
     Dates: start: 20110701

REACTIONS (1)
  - DEATH [None]
